FAERS Safety Report 22110141 (Version 1)
Quarter: 2023Q1

REPORT INFORMATION
  Report Type: Spontaneous
  Country: CA (occurrence: CA)
  Receive Date: 20230317
  Receipt Date: 20230317
  Transmission Date: 20230418
  Serious: Yes (Hospitalization, Other)
  Sender: FDA-Public Use
  Company Number: CA-SAMSUNG BIOEPIS-SB-2023-06814

PATIENT
  Age: 45 Year
  Sex: Male
  Weight: 111 kg

DRUGS (1)
  1. INFLIXIMAB [Suspect]
     Active Substance: INFLIXIMAB
     Indication: Crohn^s disease
     Route: 042

REACTIONS (10)
  - Abdominal pain [Unknown]
  - Condition aggravated [Unknown]
  - Gastrointestinal haemorrhage [Unknown]
  - Gastrointestinal ulcer haemorrhage [Unknown]
  - Haemoglobin decreased [Unknown]
  - Impaired healing [Unknown]
  - Infection [Unknown]
  - Neoplasm skin [Unknown]
  - Off label use [Unknown]
  - Intentional product use issue [Unknown]
